FAERS Safety Report 14157900 (Version 2)
Quarter: 2017Q4

REPORT INFORMATION
  Report Type: Spontaneous
  Country: FR (occurrence: FR)
  Receive Date: 20171105
  Receipt Date: 20171105
  Transmission Date: 20180321
  Serious: Yes (Hospitalization)
  Sender: FDA-Public Use
  Company Number: FR-CONCORDIA PHARMACEUTICALS INC.-GSH201711-006237

PATIENT
  Age: 51 Year
  Sex: Male

DRUGS (7)
  1. PLAQUENIL [Suspect]
     Active Substance: HYDROXYCHLOROQUINE SULFATE
     Indication: IMMUNE THROMBOCYTOPENIC PURPURA
     Route: 048
     Dates: start: 1997, end: 201709
  2. SERESTA [Concomitant]
     Active Substance: OXAZEPAM
  3. XANAX [Concomitant]
     Active Substance: ALPRAZOLAM
  4. ZOPICLONE [Concomitant]
     Active Substance: ZOPICLONE
  5. LUMIRELAX [Concomitant]
     Active Substance: METHOCARBAMOL
  6. PREVISCAN (FLUINDIONE) [Concomitant]
     Active Substance: FLUINDIONE
  7. VENLAFAXINE [Concomitant]
     Active Substance: VENLAFAXINE HYDROCHLORIDE

REACTIONS (1)
  - Cardiomyopathy [Not Recovered/Not Resolved]

NARRATIVE: CASE EVENT DATE: 201709
